FAERS Safety Report 24249390 (Version 1)
Quarter: 2024Q3

REPORT INFORMATION
  Report Type: Report from Study
  Country: US (occurrence: US)
  Receive Date: 20240826
  Receipt Date: 20240826
  Transmission Date: 20241017
  Serious: Yes (Hospitalization, Other)
  Sender: SANOFI AVENTIS
  Company Number: US-KADMON-US-KAD-22-00644

PATIENT
  Age: 59 Year
  Sex: Female

DRUGS (3)
  1. BELUMOSUDIL MESYLATE [Suspect]
     Active Substance: BELUMOSUDIL MESYLATE
     Indication: Graft versus host disease
     Dosage: 200 MG, QD
     Dates: start: 20220312
  2. PREDNISONE [Concomitant]
     Active Substance: PREDNISONE
     Indication: Product used for unknown indication
  3. TRESIBA [Concomitant]
     Active Substance: INSULIN DEGLUDEC
     Indication: Insulin therapy
     Dosage: UNK
     Dates: start: 202206

REACTIONS (4)
  - COVID-19 [Unknown]
  - Pneumonia [Unknown]
  - Respiratory tract infection viral [Unknown]
  - Hepatic enzyme increased [Unknown]
